FAERS Safety Report 7647551-4 (Version None)
Quarter: 2011Q3

REPORT INFORMATION
  Report Type: 
  Country: None (occurrence: None)
  Receive Date: 20110801
  Receipt Date: 20110726
  Transmission Date: 20111222
  Serious: Yes (Disabling, Other)
  Sender: FDA-Public Use
  Company Number: US-PFIZER INC-2011169950

PATIENT
  Sex: Male

DRUGS (4)
  1. BACLOFEN [Suspect]
     Dosage: UNK
     Route: 048
     Dates: start: 20110601, end: 20110101
  2. AMPYRA [Suspect]
     Indication: GAIT DISTURBANCE
     Dosage: 10 MG, 2X/DAY
     Route: 048
     Dates: start: 20110211, end: 20110601
  3. FLOMAX [Concomitant]
  4. ANTIVERT [Suspect]
     Dosage: UNK
     Route: 048
     Dates: start: 20110601, end: 20110101

REACTIONS (2)
  - DRUG INEFFECTIVE [None]
  - ABASIA [None]
